FAERS Safety Report 11803919 (Version 1)
Quarter: 2015Q4

REPORT INFORMATION
  Report Type: Spontaneous
  Country: BR (occurrence: BR)
  Receive Date: 20151204
  Receipt Date: 20151204
  Transmission Date: 20160305
  Serious: Yes (Other)
  Sender: FDA-Public Use
  Company Number: BR-VALIDUS PHARMACEUTICALS LLC-BR-2015VAL000786

PATIENT

DRUGS (1)
  1. PARLODEL [Suspect]
     Active Substance: BROMOCRIPTINE MESYLATE
     Indication: PITUITARY TUMOUR
     Dosage: 1 DF, QD (BEFORE SLEEPING WITH COLD MILK)
     Route: 048

REACTIONS (9)
  - Headache [Not Recovered/Not Resolved]
  - Dyspepsia [Unknown]
  - Flatulence [Unknown]
  - Nausea [Unknown]
  - Insomnia [Unknown]
  - Stress [Unknown]
  - Amenorrhoea [Recovered/Resolved]
  - Helicobacter infection [Recovering/Resolving]
  - Abdominal pain upper [Unknown]
